FAERS Safety Report 4765416-2 (Version None)
Quarter: 2005Q3

REPORT INFORMATION
  Report Type: 
  Country: None (occurrence: None)
  Receive Date: 20050908
  Receipt Date: 20050816
  Transmission Date: 20060218
  Serious: Yes (Other)
  Sender: FDA-Public Use
  Company Number: S05-CAN-03240-01

PATIENT
  Age: 56 Year
  Sex: Male

DRUGS (6)
  1. CITALOPRAM HYDROBROMIDE [Suspect]
     Dosage: 40 MG QD PO
     Route: 048
  2. LAMOTRIGINE [Suspect]
     Dosage: 100 MG QD
  3. DIVALPROEX SODIUM (VALPROATE SEMISODIUM) (DIVALPROEX SODIUM) [Concomitant]
  4. LIPITOR [Concomitant]
  5. RAMIPRIL [Concomitant]
  6. ACETYLSALICYLIC ACID SRT [Concomitant]

REACTIONS (4)
  - ABNORMAL BEHAVIOUR [None]
  - DIZZINESS [None]
  - HYPOMANIA [None]
  - NAUSEA [None]
